FAERS Safety Report 15633310 (Version 1)
Quarter: 2018Q4

REPORT INFORMATION
  Report Type: Spontaneous
  Country: FR (occurrence: FR)
  Receive Date: 20181119
  Receipt Date: 20181119
  Transmission Date: 20190205
  Serious: Yes (Hospitalization)
  Sender: FDA-Public Use
  Company Number: FR-009507513-1811FRA003788

PATIENT
  Age: 16 Year
  Sex: Female

DRUGS (2)
  1. STROMECTOL [Suspect]
     Active Substance: IVERMECTIN
     Indication: ACARODERMATITIS
     Route: 048
     Dates: start: 20180912, end: 20180912
  2. ASCABIOL [Suspect]
     Active Substance: BENZYL BENZOATE
     Indication: ACARODERMATITIS
     Dosage: UNK DOSAGE FORM
     Route: 003
     Dates: start: 20180908, end: 20180908

REACTIONS (1)
  - Acute generalised exanthematous pustulosis [Recovered/Resolved]

NARRATIVE: CASE EVENT DATE: 201809
